FAERS Safety Report 6300396-X (Version None)
Quarter: 2009Q3

REPORT INFORMATION
  Report Type: 
  Country: None (occurrence: None)
  Receive Date: 20090803
  Receipt Date: 20090724
  Transmission Date: 20100115
  Serious: Yes (Hospitalization)
  Sender: FDA-Public Use
  Company Number: ADR11252009

PATIENT
  Age: 46 Year
  Sex: Female

DRUGS (6)
  1. METFORMIN HCL [Suspect]
     Dosage: 850 MG-THREE TIMES A DAY
  2. NOVOMIX [Concomitant]
  3. RAMIPRIL [Concomitant]
  4. CITALOPRAM [Concomitant]
  5. QUETIAPINE FUMARATE [Concomitant]
  6. PROCYCLIDINE HYDROCHLORIDE 2MG TAB [Concomitant]

REACTIONS (7)
  - ABDOMINAL PAIN [None]
  - DEHYDRATION [None]
  - HYPOTHERMIA [None]
  - LACTIC ACIDOSIS [None]
  - RENAL FAILURE ACUTE [None]
  - TONGUE ULCERATION [None]
  - VOMITING [None]
